FAERS Safety Report 18742030 (Version 2)
Quarter: 2021Q1

REPORT INFORMATION
  Report Type: Spontaneous
  Country: US (occurrence: US)
  Receive Date: 20210114
  Receipt Date: 20210121
  Transmission Date: 20210419
  Serious: Yes (Hospitalization, Other)
  Sender: FDA-Public Use
  Company Number: US-PFIZER INC-2021018495

PATIENT
  Age: 35 Year
  Sex: Female

DRUGS (5)
  1. DROPERIDOL. [Suspect]
     Active Substance: DROPERIDOL
     Dosage: 0.75 MG
     Route: 042
  2. ASPIRINA FORTE [ACETYLSALICYLIC ACID] [Concomitant]
     Dosage: UNK
  3. DIAZEPAM. [Concomitant]
     Active Substance: DIAZEPAM
     Dosage: UNK
  4. PARACETAMOL [Concomitant]
     Active Substance: ACETAMINOPHEN
     Dosage: UNK
  5. CHLORDIAZEPOXIDE. [Concomitant]
     Active Substance: CHLORDIAZEPOXIDE
     Dosage: UNK

REACTIONS (2)
  - Ventricular fibrillation [Unknown]
  - Bradyarrhythmia [Unknown]
